FAERS Safety Report 7265853-0 (Version None)
Quarter: 2011Q1

REPORT INFORMATION
  Report Type: 
  Country: None (occurrence: None)
  Receive Date: 20110131
  Receipt Date: 20110124
  Transmission Date: 20110831
  Serious: Yes (Hospitalization, Congenital Anomaly)
  Sender: FDA-Public Use
  Company Number: A0909869A

PATIENT
  Sex: Male
  Weight: 3.9 kg

DRUGS (1)
  1. PAXIL [Suspect]
     Route: 064

REACTIONS (5)
  - SYNOSTOSIS [None]
  - DRUG EXPOSURE DURING PREGNANCY [None]
  - PLAGIOCEPHALY [None]
  - BRACHYCEPHALY [None]
  - CRANIOSYNOSTOSIS [None]
